FAERS Safety Report 6746329-3 (Version None)
Quarter: 2010Q2

REPORT INFORMATION
  Report Type: 
  Country: None (occurrence: None)
  Receive Date: 20100528
  Receipt Date: 20100519
  Transmission Date: 20101027
  Serious: Yes (Death, Other)
  Sender: FDA-Public Use
  Company Number: JP-PFIZER INC-2010043825

PATIENT
  Age: 69 Year
  Sex: Female

DRUGS (14)
  1. SOLU-CORTEF [Suspect]
     Indication: ASTHMA
     Dosage: 200 MG, 2X/DAY
     Route: 042
     Dates: start: 20100330, end: 20100331
  2. SOLU-CORTEF [Suspect]
     Dosage: 300 MG, 2X/DAY
     Route: 042
     Dates: start: 20100404, end: 20100404
  3. SOLU-MEDROL [Concomitant]
     Dosage: 125 MG, 1X/DAY
     Route: 042
     Dates: start: 20100329
  4. SOLU-MEDROL [Concomitant]
     Dosage: 125 MG, 2X/DAY
     Route: 042
     Dates: start: 20100401
  5. URSO 250 [Concomitant]
     Dosage: UNK
     Route: 048
  6. LIVACT [Concomitant]
     Dosage: UNK
     Route: 048
  7. MUCOSTA [Concomitant]
     Dosage: UNK
     Route: 048
  8. LASIX [Concomitant]
     Dosage: UNK
     Route: 048
  9. ALDACTONE [Concomitant]
     Dosage: UNK
     Route: 048
  10. CONIEL [Concomitant]
     Dosage: UNK
     Route: 048
  11. HOKUNALIN [Concomitant]
     Dosage: UNK
     Route: 062
  12. RINDERON [Concomitant]
     Dosage: UNK
     Route: 048
     Dates: start: 20100402, end: 20100404
  13. SOLITA-T 3G [Concomitant]
     Dosage: UNK
     Route: 042
     Dates: start: 20100329, end: 20100331
  14. NEOPHYLLIN [Concomitant]
     Dosage: UNK
     Route: 042
     Dates: start: 20100329, end: 20100329

REACTIONS (1)
  - ACUTE HEPATIC FAILURE [None]
